FAERS Safety Report 15226327 (Version 1)
Quarter: 2018Q3

REPORT INFORMATION
  Report Type: Spontaneous
  Country: JP (occurrence: JP)
  Receive Date: 20180801
  Receipt Date: 20180801
  Transmission Date: 20181010
  Serious: Yes (Life-Threatening, Other)
  Sender: FDA-Public Use
  Company Number: JP-BAUSCH-BL-2018-020563

PATIENT
  Age: 66 Year
  Sex: Male

DRUGS (6)
  1. CISPLATIN. [Suspect]
     Active Substance: CISPLATIN
     Indication: OESOPHAGEAL CANCER METASTATIC
     Dosage: FIRST CYCLE, 70 MG/M2
     Route: 065
  2. DOCETAXEL. [Suspect]
     Active Substance: DOCETAXEL
     Dosage: SECOND CYCLE, 56 MG/M2
     Route: 065
  3. FLUOROURACIL. [Suspect]
     Active Substance: FLUOROURACIL
     Indication: OESOPHAGEAL CANCER METASTATIC
     Dosage: FIRST CYCLE,700 MG/M2 X 5 DAYS
     Route: 065
  4. FLUOROURACIL. [Suspect]
     Active Substance: FLUOROURACIL
     Dosage: SECOND CYCLE, 560 MG/M2 X 5 DAYS
     Route: 065
  5. CISPLATIN. [Suspect]
     Active Substance: CISPLATIN
     Dosage: SECOND CYCLE, 70 MG/M2
     Route: 065
  6. DOCETAXEL. [Suspect]
     Active Substance: DOCETAXEL
     Indication: OESOPHAGEAL CANCER METASTATIC
     Dosage: FIRST CYCLE, 70 MG/M2
     Route: 065

REACTIONS (7)
  - Leukopenia [Unknown]
  - Mucous membrane disorder [Unknown]
  - Neutropenia [Unknown]
  - Oesophagitis [Unknown]
  - Thrombocytopenia [Unknown]
  - Decreased appetite [Unknown]
  - Febrile neutropenia [Unknown]
